FAERS Safety Report 18376120 (Version 6)
Quarter: 2020Q4

REPORT INFORMATION
  Report Type: Spontaneous
  Country: US (occurrence: US)
  Receive Date: 20201013
  Receipt Date: 20201203
  Transmission Date: 20210114
  Serious: No
  Sender: FDA-Public Use
  Company Number: US-JNJFOC-20201004966

PATIENT
  Age: 24 Year
  Sex: Male
  Weight: 106.69 kg

DRUGS (6)
  1. SIMPONI [Suspect]
     Active Substance: GOLIMUMAB
     Dosage: 50MG/ML
     Route: 058
     Dates: start: 202010, end: 202010
  2. SIMPONI [Suspect]
     Active Substance: GOLIMUMAB
     Indication: ANKYLOSING SPONDYLITIS
     Route: 058
  3. SIMPONI [Suspect]
     Active Substance: GOLIMUMAB
  4. SIMPONI [Suspect]
     Active Substance: GOLIMUMAB
     Route: 058
     Dates: start: 202010, end: 202010
  5. SIMPONI [Suspect]
     Active Substance: GOLIMUMAB
     Route: 058
  6. SIMPONI [Suspect]
     Active Substance: GOLIMUMAB
     Indication: ANKYLOSING SPONDYLITIS
     Dosage: 50.00 MG / 0.50 ML
     Route: 058
     Dates: start: 201706

REACTIONS (9)
  - Device malfunction [Unknown]
  - Product dose omission issue [Unknown]
  - Needle issue [Unknown]
  - Accidental exposure to product [Unknown]
  - Device deployment issue [Unknown]
  - Back pain [Unknown]
  - Drug delivery system malfunction [Unknown]
  - Condition aggravated [Unknown]
  - Underdose [Unknown]

NARRATIVE: CASE EVENT DATE: 20201002
